FAERS Safety Report 17122438 (Version 4)
Quarter: 2020Q1

REPORT INFORMATION
  Report Type: Spontaneous
  Country: US (occurrence: US)
  Receive Date: 20191206
  Receipt Date: 20200210
  Transmission Date: 20200409
  Serious: No
  Sender: FDA-Public Use
  Company Number: US-VERTEX PHARMACEUTICALS-2019-012104

PATIENT
  Sex: Female

DRUGS (7)
  1. SYMDEKO [Suspect]
     Active Substance: IVACAFTOR\TEZACAFTOR
     Indication: CYSTIC FIBROSIS
     Dosage: 100MG TEZACAFTOR/ 150MG IVACAFTOR; 150MG IVACAFTOR, BID
     Route: 048
     Dates: start: 20181001, end: 20191128
  2. TOBI [Concomitant]
     Active Substance: TOBRAMYCIN
  3. DORNASE [Concomitant]
     Active Substance: STREPTODORNASE\STREPTOKINASE
  4. AZITHROMYCIN ANHYDROUS. [Concomitant]
     Active Substance: AZITHROMYCIN ANHYDROUS
  5. ALBUTEROL [SALBUTAMOL] [Concomitant]
     Active Substance: ALBUTEROL
  6. HYPERTONIC SALINE SOLUTION [Concomitant]
     Active Substance: SODIUM CHLORIDE
  7. CAYSTON [Concomitant]
     Active Substance: AZTREONAM

REACTIONS (6)
  - Pyrexia [Recovering/Resolving]
  - Cough [Recovering/Resolving]
  - Nasal congestion [Recovering/Resolving]
  - Influenza [Unknown]
  - Pulmonary pain [Recovering/Resolving]
  - Chills [Recovering/Resolving]

NARRATIVE: CASE EVENT DATE: 2019
